FAERS Safety Report 25025897 (Version 1)
Quarter: 2025Q1

REPORT INFORMATION
  Report Type: Spontaneous
  Country: US (occurrence: US)
  Receive Date: 20250301
  Receipt Date: 20250301
  Transmission Date: 20250409
  Serious: No
  Sender: NOVO NORDISK
  Company Number: US-NOVOPROD-1314613

PATIENT
  Sex: Female

DRUGS (1)
  1. LIRAGLUTIDE [Suspect]
     Active Substance: LIRAGLUTIDE
     Indication: Type 2 diabetes mellitus
     Route: 058
     Dates: start: 20240603

REACTIONS (5)
  - Unevaluable event [Unknown]
  - Memory impairment [Unknown]
  - Blood glucose increased [Unknown]
  - Wrong technique in device usage process [Unknown]
  - Product label confusion [Unknown]
